FAERS Safety Report 5087244-3 (Version None)
Quarter: 2006Q3

REPORT INFORMATION
  Report Type: 
  Country: None (occurrence: None)
  Receive Date: 20060821
  Receipt Date: 20060811
  Transmission Date: 20061208
  Serious: Yes (Hospitalization)
  Sender: FDA-Public Use
  Company Number: CAWYE697314AUG06

PATIENT
  Sex: Male

DRUGS (1)
  1. PIPERACILLIN SODIUM AND TAZOBACTAM SODIUM [Suspect]
     Indication: PNEUMONIA
     Dosage: INTRAVENOUS
     Route: 042
     Dates: start: 20060805

REACTIONS (3)
  - BLOOD SODIUM INCREASED [None]
  - CONDITION AGGRAVATED [None]
  - NEPHROGENIC DIABETES INSIPIDUS [None]
